FAERS Safety Report 16654152 (Version 2)
Quarter: 2019Q3

REPORT INFORMATION
  Report Type: Spontaneous
  Country: US (occurrence: US)
  Receive Date: 20190731
  Receipt Date: 20190806
  Transmission Date: 20191004
  Serious: No
  Sender: FDA-Public Use
  Company Number: US-SA-2019SA200547

PATIENT
  Age: 32 Year
  Sex: Female

DRUGS (1)
  1. ENOXAPARIN SODIUM - WINTHROP [Suspect]
     Active Substance: ENOXAPARIN SODIUM
     Indication: PREGNANCY
     Dosage: 40 MG, QD
     Route: 065

REACTIONS (3)
  - Incorrect dose administered [Unknown]
  - Exposure during pregnancy [Unknown]
  - Syringe issue [Unknown]
